FAERS Safety Report 7926745-4 (Version None)
Quarter: 2011Q4

REPORT INFORMATION
  Report Type: 
  Country: None (occurrence: None)
  Receive Date: 20111118
  Receipt Date: 20111115
  Transmission Date: 20120403
  Serious: Yes (Life-Threatening, Hospitalization)
  Sender: FDA-Public Use
  Company Number: US-JNJFOC-20111107195

PATIENT
  Sex: Male

DRUGS (20)
  1. POTASSIUM CHLORIDE [Concomitant]
     Route: 065
  2. ONDANSETRON [Concomitant]
     Route: 065
  3. FLONASE [Concomitant]
     Route: 065
  4. GABAPENTIN [Concomitant]
     Route: 065
  5. LOVENOX [Concomitant]
     Route: 065
  6. COREG [Concomitant]
     Route: 065
  7. REVLIMID [Suspect]
     Indication: MULTIPLE MYELOMA
     Route: 048
     Dates: end: 20110801
  8. REVLIMID [Suspect]
     Route: 048
     Dates: start: 20100927, end: 20110701
  9. ATIVAN [Concomitant]
     Route: 065
  10. MEPRON [Concomitant]
     Route: 065
  11. PREDNISONE TAB [Concomitant]
     Route: 065
  12. PROTONIX [Concomitant]
     Route: 065
  13. VELCADE [Suspect]
     Indication: PRODUCT USED FOR UNKNOWN INDICATION
     Route: 042
  14. LASIX [Concomitant]
     Route: 065
  15. DECADRON [Suspect]
     Indication: PRODUCT USED FOR UNKNOWN INDICATION
     Route: 065
  16. PROCHLORPERAZINE [Concomitant]
     Route: 065
  17. VICODIN [Concomitant]
     Route: 065
  18. DOXIL [Suspect]
     Indication: PRODUCT USED FOR UNKNOWN INDICATION
     Route: 042
  19. FLUCONAZOLE [Concomitant]
     Route: 065
  20. ZOMETA [Concomitant]
     Route: 065

REACTIONS (2)
  - INTERSTITIAL LUNG DISEASE [None]
  - PNEUMOCYSTIS JIROVECI PNEUMONIA [None]
